FAERS Safety Report 16276056 (Version 1)
Quarter: 2019Q2

REPORT INFORMATION
  Report Type: Spontaneous
  Country: US (occurrence: US)
  Receive Date: 20190505
  Receipt Date: 20190505
  Transmission Date: 20190711
  Serious: No
  Sender: FDA-Public Use
  Company Number: PHEH2019US019103

PATIENT
  Age: 52 Year
  Sex: Female
  Weight: 62 kg

DRUGS (1)
  1. ENTRESTO [Suspect]
     Active Substance: SACUBITRIL\VALSARTAN
     Indication: PRODUCT USED FOR UNKNOWN INDICATION
     Dosage: 50 MG, BID
     Route: 048
     Dates: start: 20160524, end: 20161222

REACTIONS (1)
  - Tinnitus [Recovered/Resolved]

NARRATIVE: CASE EVENT DATE: 20161222
